FAERS Safety Report 7459225-3 (Version None)
Quarter: 2011Q2

REPORT INFORMATION
  Report Type: 
  Country: None (occurrence: None)
  Receive Date: 20110505
  Receipt Date: 20110421
  Transmission Date: 20111010
  Serious: Yes (Other)
  Sender: FDA-Public Use
  Company Number: ES-RANBAXY-2011RR-44100

PATIENT
  Age: 72 Year
  Sex: Female

DRUGS (3)
  1. OMEPRAZOLE [Suspect]
     Indication: ABDOMINAL PAIN UPPER
     Dosage: 20 MG, BID
  2. OMEPRAZOLE [Suspect]
     Dosage: 20 MG, QD
  3. OMEPRAZOLE [Suspect]
     Indication: FLATULENCE

REACTIONS (1)
  - NAUSEA [None]
